FAERS Safety Report 11868314 (Version 3)
Quarter: 2016Q1

REPORT INFORMATION
  Report Type: Spontaneous
  Country: JP (occurrence: JP)
  Receive Date: 20151224
  Receipt Date: 20160303
  Transmission Date: 20160526
  Serious: Yes (Hospitalization, Other)
  Sender: FDA-Public Use
  Company Number: JP-BRISTOL-MYERS SQUIBB COMPANY-BMS-2015-089215

PATIENT
  Age: 75 Year
  Sex: Male
  Weight: 76 kg

DRUGS (10)
  1. SUNVEPRA [Suspect]
     Active Substance: ASUNAPREVIR
     Indication: CHRONIC HEPATITIS C
     Dosage: 100 MG, BID
     Route: 048
     Dates: start: 20150120, end: 20150616
  2. SUNVEPRA [Suspect]
     Active Substance: ASUNAPREVIR
     Dosage: 100 MG, BID
     Route: 048
     Dates: start: 20150616, end: 20150623
  3. MYONAL                             /00287502/ [Concomitant]
     Active Substance: EPERISONE HYDROCHLORIDE
     Indication: PRODUCT USED FOR UNKNOWN INDICATION
     Dosage: 50 MG, TID
     Route: 048
  4. ASPARA POTASSIUM [Concomitant]
     Active Substance: POTASSIUM ASPARTATE
     Indication: PRODUCT USED FOR UNKNOWN INDICATION
     Dosage: 300 MG, QD
     Route: 048
  5. GASMOTIN [Concomitant]
     Active Substance: MOSAPRIDE CITRATE
     Indication: PRODUCT USED FOR UNKNOWN INDICATION
     Dosage: 5 MG, TID
     Route: 065
  6. DAKLINZA [Suspect]
     Active Substance: DACLATASVIR
     Indication: CHRONIC HEPATITIS C
     Dosage: 60 MG, QD
     Route: 048
     Dates: start: 20150120, end: 20150623
  7. TEPRENONE [Concomitant]
     Active Substance: TEPRENONE
     Indication: PRODUCT USED FOR UNKNOWN INDICATION
     Dosage: 50 MG, TID
     Route: 048
  8. SENNOSIDE                          /00571901/ [Concomitant]
     Active Substance: SENNOSIDES A AND B
     Indication: PRODUCT USED FOR UNKNOWN INDICATION
     Dosage: 72 MG, QD
     Route: 048
  9. LOXOPROFEN [Concomitant]
     Active Substance: LOXOPROFEN
     Indication: PRODUCT USED FOR UNKNOWN INDICATION
     Dosage: 60 MG, BID
     Route: 048
  10. BLOSTAR M [Concomitant]
     Indication: PRODUCT USED FOR UNKNOWN INDICATION
     Dosage: 20 MG, QD
     Route: 048

REACTIONS (4)
  - Oedema [Recovered/Resolved]
  - Ascites [Recovered/Resolved]
  - Cardiac failure congestive [Recovering/Resolving]
  - Angina pectoris [Recovering/Resolving]

NARRATIVE: CASE EVENT DATE: 20150512
